FAERS Safety Report 8597564-3 (Version None)
Quarter: 2012Q3

REPORT INFORMATION
  Report Type: 
  Country: None (occurrence: None)
  Receive Date: 20120816
  Receipt Date: 20120807
  Transmission Date: 20120928
  Serious: Yes (Hospitalization, Other)
  Sender: FDA-Public Use
  Company Number: ES-COVIDIEN/TYCO HEALTHCARE/MALLINCKRODT-T201203186

PATIENT
  Age: 38 Year
  Sex: Female

DRUGS (6)
  1. ACETAMINOPHEN [Concomitant]
     Dosage: UNK
  2. DOLANTINA [Concomitant]
     Indication: PAIN
     Dosage: UNK
  3. PENNSAID [Suspect]
     Dosage: 50 MG  Q 12 HR, 6 DOSES
     Route: 030
  4. METAMIZOLE [Concomitant]
     Dosage: UNK
  5. BUSCAPINA [Concomitant]
     Dosage: UNK
  6. DIAZEPAM [Concomitant]
     Dosage: UNK

REACTIONS (5)
  - PROTEINURIA [None]
  - HYPERTENSION [None]
  - MATERNAL EXPOSURE DURING PREGNANCY [None]
  - OLIGOHYDRAMNIOS [None]
  - PRE-ECLAMPSIA [None]
